FAERS Safety Report 8824881 (Version 2)
Quarter: 2012Q4

REPORT INFORMATION
  Report Type: Report from Study
  Country: AU (occurrence: AU)
  Receive Date: 20121004
  Receipt Date: 20121019
  Transmission Date: 20130627
  Serious: Yes (Other)
  Sender: FDA-Public Use
  Company Number: AU-ROCHE-1141578

PATIENT
  Sex: Male
  Weight: 100 kg

DRUGS (1)
  1. VEMURAFENIB [Suspect]
     Indication: MALIGNANT MELANOMA
     Route: 048
     Dates: start: 20120703, end: 20120813

REACTIONS (1)
  - Disease progression [Unknown]
